APPROVED DRUG PRODUCT: CELECOXIB
Active Ingredient: CELECOXIB
Strength: 100MG
Dosage Form/Route: CAPSULE;ORAL
Application: A076898 | Product #002 | TE Code: AB
Applicant: TEVA PHARMACEUTICALS USA INC
Approved: May 30, 2014 | RLD: No | RS: No | Type: RX